FAERS Safety Report 9101012 (Version 1)
Quarter: 2013Q1

REPORT INFORMATION
  Report Type: Spontaneous
  Country: BE (occurrence: BE)
  Receive Date: 20130215
  Receipt Date: 20130215
  Transmission Date: 20140127
  Serious: Yes (Hospitalization)
  Sender: FDA-Public Use
  Company Number: BE-009507513-1302BEL003711

PATIENT
  Age: 58 Year
  Sex: Female

DRUGS (5)
  1. PEGINTRON [Suspect]
     Indication: HEPATITIS C
     Dosage: QW; DAILY DOSE: 120 MCG
     Dates: start: 20120928
  2. REBETOL [Suspect]
     Indication: HEPATITIS C
     Dosage: DAILY DOSE: 1000MG, BID
     Dates: start: 20120928, end: 20130106
  3. REBETOL [Suspect]
     Dosage: DAILY DOSE: 800 MG, BID
     Dates: start: 20130107
  4. VICTRELIS [Suspect]
     Indication: HEPATITIS C
     Dosage: DAILY DOSE: 2400MG, TID
     Dates: start: 20121026, end: 20130106
  5. VICTRELIS [Suspect]
     Dosage: UNK
     Dates: start: 20130107

REACTIONS (4)
  - Respiratory disorder [Unknown]
  - Pyrexia [Unknown]
  - Anaemia [Unknown]
  - Bacterial diarrhoea [Unknown]
